FAERS Safety Report 13381366 (Version 1)
Quarter: 2017Q1

REPORT INFORMATION
  Report Type: Spontaneous
  Country: US (occurrence: US)
  Receive Date: 20170329
  Receipt Date: 20170329
  Transmission Date: 20170429
  Serious: Yes (Hospitalization, Other)
  Sender: FDA-Public Use
  Company Number: US-ZYDUS-014273

PATIENT
  Age: 76 Year
  Sex: Male

DRUGS (5)
  1. SIROLIMUS. [Suspect]
     Active Substance: SIROLIMUS
     Indication: IMMUNOSUPPRESSANT DRUG THERAPY
     Route: 065
  2. MYCOPHENOLIC ACID. [Suspect]
     Active Substance: MYCOPHENOLIC ACID
     Indication: IMMUNOSUPPRESSANT DRUG THERAPY
     Route: 065
  3. PREDNISONE. [Suspect]
     Active Substance: PREDNISONE
     Indication: IMMUNOSUPPRESSANT DRUG THERAPY
     Route: 065
  4. WARFARIN [Concomitant]
     Active Substance: WARFARIN
     Indication: HYPERCOAGULATION
     Route: 065
  5. LEUPRORELIN [Concomitant]
     Active Substance: LEUPROLIDE ACETATE
     Indication: ANTIANDROGEN THERAPY
     Route: 065

REACTIONS (8)
  - Cough [Unknown]
  - Renal tubular necrosis [Not Recovered/Not Resolved]
  - Alveolitis allergic [Unknown]
  - Lung infiltration [Unknown]
  - Oedema peripheral [Unknown]
  - Rales [Unknown]
  - Dyspnoea [Unknown]
  - Haemoptysis [Unknown]
